FAERS Safety Report 9478181 (Version 2)
Quarter: 2014Q1

REPORT INFORMATION
  Report Type: Spontaneous
  Country: IT (occurrence: IT)
  Receive Date: 20130827
  Receipt Date: 20140331
  Transmission Date: 20141002
  Serious: Yes (Hospitalization)
  Sender: FDA-Public Use
  Company Number: IT-PFIZER INC-2013244746

PATIENT
  Age: 24 Year
  Sex: Female

DRUGS (1)
  1. XANAX [Suspect]
     Indication: INTENTIONAL OVERDOSE
     Dosage: 20 ML, SINGLE
     Route: 048
     Dates: start: 20130724, end: 20130724

REACTIONS (3)
  - Intentional overdose [Recovered/Resolved]
  - Mood altered [Recovered/Resolved]
  - Borderline personality disorder [Unknown]
